FAERS Safety Report 14554082 (Version 1)
Quarter: 2018Q1

REPORT INFORMATION
  Report Type: Spontaneous
  Country: US (occurrence: US)
  Receive Date: 20180212
  Receipt Date: 20180212
  Transmission Date: 20180509
  Serious: Yes (Hospitalization)
  Sender: FDA-Public Use
  Company Number: None

PATIENT
  Age: 65 Year
  Sex: Female
  Weight: 108.9 kg

DRUGS (1)
  1. REGORAFENIB [Suspect]
     Active Substance: REGORAFENIB
     Indication: RECTAL CANCER METASTATIC
     Dosage: FREQUENCY - DAILY ON DAYS 1-21
     Route: 048
     Dates: start: 20170616

REACTIONS (6)
  - Cerebral haemorrhage [None]
  - Fall [None]
  - Musculoskeletal chest pain [None]
  - International normalised ratio increased [None]
  - Cerebral calcification [None]
  - Pleural effusion [None]

NARRATIVE: CASE EVENT DATE: 20180211
